FAERS Safety Report 6349305-8 (Version None)
Quarter: 2009Q3

REPORT INFORMATION
  Report Type: 
  Country: None (occurrence: None)
  Receive Date: 20090911
  Receipt Date: 20090902
  Transmission Date: 20100115
  Serious: Yes (Hospitalization)
  Sender: FDA-Public Use
  Company Number: B0587040A

PATIENT
  Sex: Female
  Weight: 57 kg

DRUGS (7)
  1. HYCAMTIN [Suspect]
     Indication: CERVIX CARCINOMA
     Dosage: 1MG PER DAY
     Route: 042
     Dates: start: 20090629, end: 20090701
  2. CISPLATIN [Suspect]
     Indication: CERVIX CARCINOMA
     Dosage: 70MG PER DAY
     Route: 042
     Dates: start: 20090629, end: 20090629
  3. LACTATED RINGER'S [Concomitant]
     Route: 042
     Dates: start: 20090629
  4. FAMOTIDINE [Concomitant]
     Dosage: 20MG PER DAY
     Route: 042
     Dates: start: 20090629, end: 20090629
  5. GRANISETRON HYDROCHLORIDE [Concomitant]
     Dosage: 3MG PER DAY
     Route: 042
     Dates: start: 20090629
  6. DEXAMETHASONE SODIUM PHOSPHATE [Concomitant]
     Dosage: 20MG PER DAY
     Route: 042
     Dates: start: 20090629
  7. CISPLATIN [Concomitant]
     Dosage: 100MG PER DAY
     Route: 042

REACTIONS (1)
  - NEUTROPENIA [None]
